FAERS Safety Report 5278924-5 (Version None)
Quarter: 2007Q1

REPORT INFORMATION
  Report Type: 
  Country: None (occurrence: None)
  Receive Date: 20070328
  Receipt Date: 20070318
  Transmission Date: 20070707
  Serious: Yes (Other)
  Sender: FDA-Public Use
  Company Number: GB-ROCHE-488869

PATIENT
  Age: 59 Year
  Sex: Female
  Weight: 86.2 kg

DRUGS (3)
  1. XENICAL [Suspect]
     Indication: OBESITY
     Route: 048
     Dates: start: 20061028
  2. 1 CONCOMITANT DRUG [Concomitant]
     Indication: ASTHMA
     Route: 055
  3. ANTIHYPERTENSIVE NOS [Concomitant]
     Indication: HYPERTENSION
     Route: 048

REACTIONS (2)
  - DIABETES MELLITUS [None]
  - LOWER RESPIRATORY TRACT INFECTION [None]
